FAERS Safety Report 4558242-0 (Version None)
Quarter: 2005Q1

REPORT INFORMATION
  Report Type: 
  Country: None (occurrence: None)
  Receive Date: 20050103
  Receipt Date: 20041015
  Transmission Date: 20050727
  Serious: Yes (Other)
  Sender: FDA-Public Use
  Company Number: 2004UW21540

PATIENT
  Sex: Female

DRUGS (2)
  1. CRESTOR [Suspect]
  2. DILANTIN [Suspect]

REACTIONS (1)
  - DRUG INTERACTION [None]
